FAERS Safety Report 9640003 (Version 2)
Quarter: 2014Q2

REPORT INFORMATION
  Report Type: Spontaneous
  Country: JP (occurrence: JP)
  Receive Date: 20131023
  Receipt Date: 20140618
  Transmission Date: 20141212
  Serious: No
  Sender: FDA-Public Use
  Company Number: PHHY2013JP119455

PATIENT
  Sex: 0

DRUGS (1)
  1. TASIGNA [Suspect]
     Dosage: UNK UKN, UNK
     Route: 048

REACTIONS (2)
  - Wrong technique in drug usage process [Unknown]
  - Dysphagia [Unknown]
